FAERS Safety Report 5093298-0 (Version None)
Quarter: 2006Q3

REPORT INFORMATION
  Report Type: 
  Country: None (occurrence: None)
  Receive Date: 20060828
  Receipt Date: 20060816
  Transmission Date: 20061208
  Serious: Yes (Hospitalization)
  Sender: FDA-Public Use
  Company Number: DEU-2006-0002424

PATIENT
  Age: 70 Year
  Sex: Male
  Weight: 83 kg

DRUGS (3)
  1. OXYCODONE 10MG/NALOXON 5MG(OXYCODONE HYDROCHLORIDE, OXYCODONE HYDROCHL [Suspect]
     Indication: BACK PAIN
     Dosage: 10 MG, TID, ORAL
     Route: 048
     Dates: start: 20060324
  2. TAMSULOSIN HCL [Concomitant]
  3. UROLOGICALS [Concomitant]

REACTIONS (1)
  - EPIDIDYMITIS [None]
